FAERS Safety Report 8891141 (Version 2)
Quarter: 2012Q4

REPORT INFORMATION
  Report Type: 
  Country: US (occurrence: US)
  Receive Date: 20121107
  Receipt Date: 20121227
  Transmission Date: 20130627
  Serious: Yes (Death)
  Sender: FDA-Public Use
  Company Number: US-SHIRE-ALL1-2012-05442

PATIENT
  Sex: Female

DRUGS (2)
  1. FOSRENOL [Suspect]
     Indication: RENAL FAILURE CHRONIC
     Dosage: 1000 mg, UNK(3 tablets daily)
     Route: 048
  2. FOSRENOL [Suspect]
     Indication: HYPERPHOSPHATAEMIA

REACTIONS (1)
  - Cardiac arrest [Fatal]
